FAERS Safety Report 7700656-1 (Version None)
Quarter: 2011Q3

REPORT INFORMATION
  Report Type: 
  Country: None (occurrence: None)
  Receive Date: 20110822
  Receipt Date: 20110822
  Transmission Date: 20111222
  Serious: Yes (Other)
  Sender: FDA-Public Use
  Company Number: None

PATIENT
  Age: 65 Year
  Sex: Female
  Weight: 43.091 kg

DRUGS (2)
  1. BONIVA [Suspect]
     Indication: OSTEOPOROSIS
     Dosage: 1 TABLET
     Route: 048
     Dates: start: 20110703, end: 20110803
  2. BONIVA [Suspect]
     Indication: BONE LOSS
     Dosage: 1 TABLET
     Route: 048
     Dates: start: 20110703, end: 20110803

REACTIONS (2)
  - ARTHRALGIA [None]
  - BACK PAIN [None]
